FAERS Safety Report 6873291-5 (Version None)
Quarter: 2010Q3

REPORT INFORMATION
  Report Type: 
  Country: None (occurrence: None)
  Receive Date: 20100723
  Receipt Date: 20090402
  Transmission Date: 20110219
  Serious: No
  Sender: FDA-Public Use
  Company Number: US-PFIZER INC-2008159510

PATIENT
  Age: 51 Year
  Sex: Male

DRUGS (3)
  1. CHANTIX [Suspect]
     Indication: SMOKING CESSATION THERAPY
     Dosage: 0.5 MG, 1X/DAY
     Dates: start: 20081126
  2. CHANTIX [Suspect]
     Dates: end: 20081201
  3. CHANTIX [Suspect]

REACTIONS (2)
  - DRUG INEFFECTIVE [None]
  - TOBACCO USER [None]
